FAERS Safety Report 9292765 (Version 1)
Quarter: 2013Q2

REPORT INFORMATION
  Report Type: Spontaneous
  Country: AU (occurrence: AU)
  Receive Date: 20130516
  Receipt Date: 20130516
  Transmission Date: 20140414
  Serious: Yes (Other)
  Sender: FDA-Public Use
  Company Number: AU-PFIZER INC-2013151030

PATIENT
  Sex: Male

DRUGS (1)
  1. CHAMPIX [Suspect]
     Dosage: UNK
     Dates: start: 201108

REACTIONS (6)
  - Abnormal behaviour [Unknown]
  - Depression [Unknown]
  - Agitation [Unknown]
  - Anger [Unknown]
  - Narcissistic personality disorder [Unknown]
  - Personality change [Unknown]
